FAERS Safety Report 4721447-X (Version None)
Quarter: 2005Q3

REPORT INFORMATION
  Report Type: 
  Country: None (occurrence: None)
  Receive Date: 20050721
  Receipt Date: 20040909
  Transmission Date: 20060218
  Serious: No
  Sender: FDA-Public Use
  Company Number: US-BRISTOL-MYERS SQUIBB COMPANY-12698494

PATIENT
  Age: 61 Year
  Sex: Female
  Weight: 68 kg

DRUGS (5)
  1. COUMADIN [Suspect]
     Indication: THROMBOSIS
     Route: 048
     Dates: start: 20040421
  2. DURAGESIC-100 [Concomitant]
  3. HYDROMORPHONE HCL [Concomitant]
  4. DARVOCET [Concomitant]
  5. ULTRAM [Concomitant]

REACTIONS (5)
  - ABDOMINAL PAIN [None]
  - ALOPECIA [None]
  - FLANK PAIN [None]
  - INTERNATIONAL NORMALISED RATIO INCREASED [None]
  - VITAMIN B12 DEFICIENCY [None]
